FAERS Safety Report 19574667 (Version 1)
Quarter: 2021Q3

REPORT INFORMATION
  Report Type: Spontaneous
  Country: US (occurrence: US)
  Receive Date: 20210719
  Receipt Date: 20210719
  Transmission Date: 20211014
  Serious: No
  Sender: FDA-Public Use
  Company Number: US-AUROBINDO-AUR-APL-2021-008726

PATIENT
  Age: 78 Year
  Sex: Female
  Weight: 57.15 kg

DRUGS (1)
  1. ATOMOXETINE CAPSULES USP 80 MG [Suspect]
     Active Substance: ATOMOXETINE
     Indication: PRODUCT USED FOR UNKNOWN INDICATION
     Dosage: SHE IS PRESCRIBED THE DRUG WITH 40 MG DOSE, BUT THE PHARMACY GAVE HER 80 MG DRUG AND ASKED H
     Route: 065

REACTIONS (3)
  - Wrong technique in product usage process [Unknown]
  - Product physical issue [Unknown]
  - Product dispensing error [Unknown]
